FAERS Safety Report 4841340-1 (Version None)
Quarter: 2005Q4

REPORT INFORMATION
  Report Type: 
  Country: None (occurrence: None)
  Receive Date: 20051130
  Receipt Date: 20051124
  Transmission Date: 20060501
  Serious: Yes (Death)
  Sender: FDA-Public Use
  Company Number: CH-GLAXOSMITHKLINE-B0401965A

PATIENT
  Age: 47 Year
  Sex: Female

DRUGS (3)
  1. LAMIVUDINE [Suspect]
     Indication: HIV INFECTION
     Dosage: 300MG PER DAY
     Route: 048
     Dates: start: 20050614, end: 20050927
  2. REYATAZ [Suspect]
     Indication: HIV INFECTION
     Dosage: 400MG PER DAY
     Route: 048
     Dates: start: 20050614, end: 20050927
  3. VIDEX [Suspect]
     Indication: HIV INFECTION
     Dosage: 300MG PER DAY
     Route: 048
     Dates: start: 20050614, end: 20050927

REACTIONS (11)
  - ABDOMINAL PAIN [None]
  - CARDIOVASCULAR DISORDER [None]
  - COMA HEPATIC [None]
  - HAEMODIALYSIS [None]
  - HEPATIC FAILURE [None]
  - LACTIC ACIDOSIS [None]
  - MULTI-ORGAN FAILURE [None]
  - PANCREATITIS NECROTISING [None]
  - RENAL FAILURE [None]
  - RENAL FAILURE ACUTE [None]
  - SYSTEMIC INFLAMMATORY RESPONSE SYNDROME [None]
